FAERS Safety Report 9757610 (Version 1)
Quarter: 2013Q4

REPORT INFORMATION
  Report Type: Spontaneous
  Country: US (occurrence: US)
  Receive Date: 20131216
  Receipt Date: 20131216
  Transmission Date: 20140711
  Serious: Yes (Hospitalization)
  Sender: FDA-Public Use
  Company Number: US-BIOGENIDEC-2013BI117429

PATIENT
  Age: 43 Year
  Sex: Male

DRUGS (1)
  1. AVONEX [Suspect]
     Indication: MULTIPLE SCLEROSIS
     Route: 030
     Dates: start: 20081219, end: 2013

REACTIONS (3)
  - Neck surgery [Recovered/Resolved]
  - Intervertebral disc protrusion [Recovered/Resolved]
  - Headache [Recovered/Resolved]
